FAERS Safety Report 8077891-9 (Version None)
Quarter: 2012Q1

REPORT INFORMATION
  Report Type: 
  Country: None (occurrence: None)
  Receive Date: 20120127
  Receipt Date: 20120117
  Transmission Date: 20120608
  Serious: Yes (Hospitalization)
  Sender: FDA-Public Use
  Company Number: GB-MERCK-1112GBR00078

PATIENT
  Age: 68 Year
  Sex: Male

DRUGS (5)
  1. ACETAMINOPHEN [Concomitant]
     Route: 048
     Dates: end: 20111206
  2. ASPIRIN [Concomitant]
     Route: 048
  3. DALTEPARIN SODIUM [Concomitant]
     Route: 058
  4. ZOCOR [Suspect]
     Route: 048
     Dates: end: 20111206
  5. FLOXACILLIN SODIUM [Suspect]
     Indication: WOUND INFECTION
     Route: 048
     Dates: start: 20111010, end: 20111024

REACTIONS (1)
  - CHOLESTASIS [None]
